FAERS Safety Report 9372480 (Version 2)
Quarter: 2013Q2

REPORT INFORMATION
  Report Type: Spontaneous
  Country: US (occurrence: None)
  Receive Date: 20130613
  Receipt Date: 20130624
  Transmission Date: 20140414
  Serious: Yes (Congenital Anomaly, Other)
  Sender: FDA-Public Use
  Company Number: 2013036460

PATIENT
  Sex: Male

DRUGS (2)
  1. IVIG (IMMUNE GLOBULIN INTRAVENOUS (HUMAN)) [Suspect]
     Indication: HEART BLOCK CONGENITAL
     Route: 064
  2. DEXAMETHASONE (DEXAMETHASONE) [Concomitant]

REACTIONS (4)
  - Caesarean section [None]
  - Drug ineffective [None]
  - Foetal exposure during pregnancy [None]
  - Off label use [None]
